FAERS Safety Report 6848628-3 (Version None)
Quarter: 2010Q3

REPORT INFORMATION
  Report Type: 
  Country: None (occurrence: None)
  Receive Date: 20100716
  Receipt Date: 20100715
  Transmission Date: 20110219
  Serious: Yes (Hospitalization)
  Sender: FDA-Public Use
  Company Number: GXKR2009DE02646

PATIENT
  Age: 91 Year
  Sex: Female
  Weight: 76 kg

DRUGS (4)
  1. AMLODIPINE [Suspect]
     Indication: HYPERTENSION
     Dosage: 5 MG, QD
     Route: 048
  2. DIOVAN HCT [Suspect]
     Dosage: 160 MG, QD
     Route: 048
  3. DIOVAN HCT [Suspect]
     Dosage: 80 MG, QD
  4. METOHEXAL (NGX) [Suspect]
     Indication: HYPERTENSION
     Dosage: 47.5 MG, 2 IN 2 DAY
     Route: 048

REACTIONS (2)
  - HYPOTENSION [None]
  - SYNCOPE [None]
